FAERS Safety Report 5783898-4 (Version None)
Quarter: 2008Q2

REPORT INFORMATION
  Report Type: 
  Country: None (occurrence: None)
  Receive Date: 20080605
  Receipt Date: 20080404
  Transmission Date: 20081010
  Serious: No
  Sender: FDA-Public Use
  Company Number: A0717512A

PATIENT

DRUGS (2)
  1. ALLI [Suspect]
     Indication: DRUG USE FOR UNKNOWN INDICATION
  2. VITAMIN CAP [Suspect]

REACTIONS (5)
  - DEPRESSED MOOD [None]
  - DEPRESSION [None]
  - HEADACHE [None]
  - HORMONE LEVEL ABNORMAL [None]
  - WEIGHT INCREASED [None]
